FAERS Safety Report 14787658 (Version 1)
Quarter: 2018Q2

REPORT INFORMATION
  Report Type: Spontaneous
  Country: GB (occurrence: GB)
  Receive Date: 20180421
  Receipt Date: 20180421
  Transmission Date: 20180711
  Serious: Yes (Other)
  Sender: FDA-Public Use
  Company Number: GB-AUROBINDO-AUR-APL-2018-020885

PATIENT
  Age: 43 Year
  Sex: Male
  Weight: 69.85 kg

DRUGS (1)
  1. CITALOPRAM [Suspect]
     Active Substance: CITALOPRAM HYDROBROMIDE
     Indication: DEPRESSION SUICIDAL
     Dosage: 10 MILLIGRAM
     Route: 048
     Dates: start: 19970510, end: 20180305

REACTIONS (4)
  - Urge incontinence [Not Recovered/Not Resolved]
  - Withdrawal syndrome [Unknown]
  - Amnesia [Unknown]
  - Urticaria [Unknown]

NARRATIVE: CASE EVENT DATE: 20040306
